FAERS Safety Report 4534858-2 (Version None)
Quarter: 2004Q4

REPORT INFORMATION
  Report Type: 
  Country: None (occurrence: None)
  Receive Date: 20041222
  Receipt Date: 20040512
  Transmission Date: 20050328
  Serious: No
  Sender: FDA-Public Use
  Company Number: US-BRISTOL-MYERS SQUIBB COMPANY-12585642

PATIENT
  Age: 77 Year
  Sex: Male
  Weight: 88 kg

DRUGS (6)
  1. PRAVACHOL [Suspect]
     Indication: BLOOD CHOLESTEROL
     Route: 048
     Dates: end: 20040501
  2. ASPIRIN [Concomitant]
  3. POTASSIUM CHLORIDE [Concomitant]
  4. GLYBURIDE [Concomitant]
  5. CARDURA [Concomitant]
  6. CELEBREX [Concomitant]
     Dosage: INCREASED TO 200 MG DAILY DUE TO EVENT

REACTIONS (1)
  - MYALGIA [None]
